FAERS Safety Report 7051296-1 (Version None)
Quarter: 2010Q4

REPORT INFORMATION
  Report Type: 
  Country: None (occurrence: None)
  Receive Date: 20101013
  Receipt Date: 20100930
  Transmission Date: 20110411
  Serious: Yes (Hospitalization)
  Sender: FDA-Public Use
  Company Number: 001888

PATIENT
  Sex: Female
  Weight: 99.3377 kg

DRUGS (5)
  1. LACOSAMIDE [Suspect]
     Indication: EPILEPSY
     Dosage: (150 MG BID ORAL)
     Route: 048
     Dates: start: 20090317
  2. LACOSAMIDE [Suspect]
  3. LEVOTHYROXINE [Concomitant]
  4. KEPPRA [Concomitant]
  5. DEPAKOTE [Concomitant]

REACTIONS (4)
  - CONVULSION [None]
  - FOOT FRACTURE [None]
  - LACERATION [None]
  - ROAD TRAFFIC ACCIDENT [None]
